FAERS Safety Report 7737575-0 (Version None)
Quarter: 2011Q3

REPORT INFORMATION
  Report Type: 
  Country: None (occurrence: None)
  Receive Date: 20110908
  Receipt Date: 20110831
  Transmission Date: 20111222
  Serious: Yes (Other)
  Sender: FDA-Public Use
  Company Number: US-MERCK-1012USA03781

PATIENT
  Age: 54 Year
  Sex: Female

DRUGS (8)
  1. LEXAPRO [Concomitant]
     Route: 065
     Dates: start: 19920101
  2. SYNTHROID [Concomitant]
     Route: 048
     Dates: start: 19920101
  3. VITAMIN D (UNSPECIFIED) [Concomitant]
     Route: 065
     Dates: start: 19920101
  4. FOSAMAX [Suspect]
     Indication: OSTEOPOROSIS
     Route: 048
     Dates: start: 19980401
  5. CALCIUM (UNSPECIFIED) [Concomitant]
     Route: 065
     Dates: start: 19920101
  6. VITAMINS (UNSPECIFIED) [Concomitant]
     Route: 065
     Dates: start: 19920101
  7. PROZAC [Concomitant]
     Route: 065
     Dates: start: 19920101
  8. FOSAMAX PLUS D [Suspect]
     Route: 048

REACTIONS (6)
  - ANXIETY [None]
  - DEPRESSION [None]
  - FEMUR FRACTURE [None]
  - VITAMIN D DEFICIENCY [None]
  - TOOTH DISORDER [None]
  - FALL [None]
